FAERS Safety Report 5757751-6 (Version None)
Quarter: 2008Q2

REPORT INFORMATION
  Report Type: 
  Country: None (occurrence: None)
  Receive Date: 20080529
  Receipt Date: 20080513
  Transmission Date: 20081010
  Serious: Yes (Hospitalization)
  Sender: FDA-Public Use
  Company Number: 8032785

PATIENT
  Sex: Male

DRUGS (2)
  1. KEPPRA [Suspect]
     Dosage: PO
     Route: 048
     Dates: start: 20050601
  2. KEPPRA [Suspect]
     Dosage: 1125 MG PO
     Route: 048

REACTIONS (8)
  - BALANCE DISORDER [None]
  - COUGH [None]
  - DIZZINESS [None]
  - ECZEMA [None]
  - FREQUENT BOWEL MOVEMENTS [None]
  - MEMORY IMPAIRMENT [None]
  - URINARY TRACT INFECTION [None]
  - WEIGHT DECREASED [None]
